FAERS Safety Report 5866271-X (Version None)
Quarter: 2008Q3

REPORT INFORMATION
  Report Type: 
  Country: None (occurrence: None)
  Receive Date: 20080829
  Receipt Date: 20080818
  Transmission Date: 20090109
  Serious: Yes (Death, Other)
  Sender: FDA-Public Use
  Company Number: US-PFIZER INC-2008071536

PATIENT
  Age: 53 Year
  Sex: Male

DRUGS (5)
  1. DOXEPIN HCL [Suspect]
  2. ALPRAZOLAM [Suspect]
  3. MORPHINE ORAL [Suspect]
  4. TEMAZEPAM [Suspect]
  5. CARISOPRODOL [Suspect]

REACTIONS (2)
  - MULTIPLE DRUG OVERDOSE ACCIDENTAL [None]
  - SUBSTANCE ABUSE [None]
